FAERS Safety Report 6805155-7 (Version None)
Quarter: 2010Q2

REPORT INFORMATION
  Report Type: 
  Country: None (occurrence: None)
  Receive Date: 20100628
  Receipt Date: 20070915
  Transmission Date: 20101027
  Serious: No
  Sender: FDA-Public Use
  Company Number: US-PFIZER INC-2007061850

PATIENT
  Sex: Male
  Weight: 78.02 kg

DRUGS (2)
  1. GEODON [Suspect]
     Indication: MENTAL DISORDER
     Route: 048
     Dates: start: 20070717, end: 20070731
  2. ZOLOFT [Concomitant]

REACTIONS (1)
  - TEMPERATURE INTOLERANCE [None]
